FAERS Safety Report 10248911 (Version 1)
Quarter: 2014Q2

REPORT INFORMATION
  Report Type: Spontaneous
  Country: FR (occurrence: None)
  Receive Date: 20140618
  Receipt Date: 20140618
  Transmission Date: 20141212
  Serious: Yes (Hospitalization, Disabling)
  Sender: FDA-Public Use
  Company Number: AUR-APL-2014-06498

PATIENT
  Age: 79 Year
  Sex: Male

DRUGS (4)
  1. SIMVASTATIN [Suspect]
     Indication: PRODUCT USED FOR UNKNOWN INDICATION
     Route: 048
     Dates: end: 20120817
  2. CORDARONE [Suspect]
     Indication: PRODUCT USED FOR UNKNOWN INDICATION
     Route: 048
     Dates: end: 201208
  3. COUMADINE (WARFARIN SODIUM) [Concomitant]
  4. PLAVIX (CLOPIDOGREL BISULFATE) (CLOPIDOGREL BISULFATE) [Concomitant]

REACTIONS (6)
  - Interstitial lung disease [None]
  - Asthenia [None]
  - Dyspnoea [None]
  - Bronchopneumopathy [None]
  - Pulmonary fibrosis [None]
  - Lung disorder [None]
